FAERS Safety Report 9541033 (Version 1)
Quarter: 2013Q3

REPORT INFORMATION
  Report Type: Spontaneous
  Country: US (occurrence: US)
  Receive Date: 20130922
  Receipt Date: 20130922
  Transmission Date: 20140515
  Serious: Yes (Hospitalization)
  Sender: FDA-Public Use
  Company Number: US-MYLANLABS-2013S1020531

PATIENT
  Age: 47 Year
  Sex: Female

DRUGS (5)
  1. CLOZAPINE [Suspect]
     Indication: SCHIZOPHRENIA
     Dosage: NIGHTLY
     Route: 065
  2. CITALOPRAM [Suspect]
     Indication: SCHIZOPHRENIA
     Dosage: 10MG DAILY
     Route: 065
  3. METOCLOPRAMIDE [Suspect]
     Indication: GASTROENTERITIS VIRAL
     Route: 065
  4. ONDANSETRON [Suspect]
     Indication: GASTROENTERITIS VIRAL
     Route: 065
  5. PROMETHAZINE [Concomitant]
     Indication: GASTROENTERITIS VIRAL
     Route: 065

REACTIONS (2)
  - Serotonin syndrome [Recovered/Resolved]
  - Drug administration error [Recovered/Resolved]
